FAERS Safety Report 11448783 (Version 1)
Quarter: 2015Q3

REPORT INFORMATION
  Report Type: Spontaneous
  Country: FR (occurrence: FR)
  Receive Date: 20150902
  Receipt Date: 20150902
  Transmission Date: 20151125
  Serious: Yes (Hospitalization)
  Sender: FDA-Public Use
  Company Number: FR-GE HEALTHCARE MEDICAL DIAGNOSTICS-VISP-PR-1508S-0331

PATIENT
  Age: 81 Year
  Sex: Female

DRUGS (15)
  1. VISIPAQUE [Suspect]
     Active Substance: IODIXANOL
     Indication: PRODUCT USED FOR UNKNOWN INDICATION
     Dosage: DOSE NOT REPORTED
     Route: 042
     Dates: start: 20150731, end: 20150731
  2. LANTUS [Concomitant]
     Active Substance: INSULIN GLARGINE
  3. PARACETAMOL [Concomitant]
     Active Substance: ACETAMINOPHEN
  4. FUROSEMIDE. [Concomitant]
     Active Substance: FUROSEMIDE
  5. ZINNAT [Suspect]
     Active Substance: CEFUROXIME AXETIL
     Route: 042
     Dates: start: 20150729, end: 20150729
  6. PROTAMINE CHOAY [Suspect]
     Active Substance: PROTAMINE
     Route: 042
     Dates: start: 20150729, end: 20150729
  7. VISIPAQUE [Suspect]
     Active Substance: IODIXANOL
     Indication: DIAGNOSTIC PROCEDURE
  8. NALBUPHINE MYLAN [Suspect]
     Active Substance: NALBUPHINE
     Route: 042
     Dates: start: 20150729, end: 20150729
  9. LOVENOX [Suspect]
     Active Substance: ENOXAPARIN SODIUM
     Route: 058
     Dates: start: 20150802, end: 20150804
  10. XENETIX [Concomitant]
     Active Substance: IOBITRIDOL
     Route: 042
     Dates: start: 20150727, end: 20150727
  11. SMECTA [Concomitant]
     Active Substance: MONTMORILLONITE
  12. CYAMEMAZINE [Concomitant]
     Active Substance: CYAMEMAZINE
  13. DILTIAZEM [Concomitant]
     Active Substance: DILTIAZEM
  14. MIDAZOLAM [Suspect]
     Active Substance: MIDAZOLAM\MIDAZOLAM HYDROCHLORIDE
     Route: 042
     Dates: start: 20150729, end: 20150729
  15. RAMIPRIL EPLERENONE [Concomitant]

REACTIONS (1)
  - Acute generalised exanthematous pustulosis [Recovering/Resolving]

NARRATIVE: CASE EVENT DATE: 20150803
